FAERS Safety Report 10218607 (Version 1)
Quarter: 2014Q2

REPORT INFORMATION
  Report Type: Spontaneous
  Country: US (occurrence: None)
  Receive Date: 20140603
  Receipt Date: 20140603
  Transmission Date: 20141212
  Serious: Yes (Death)
  Sender: FDA-Public Use
  Company Number: 2014US003321

PATIENT
  Age: 47 Year
  Sex: Female

DRUGS (3)
  1. ICLUSIG (PONATINIB) [Suspect]
     Indication: CHRONIC MYELOID LEUKAEMIA
     Route: 048
  2. MEGACE ES (MEGESTROL ACETATE) [Concomitant]
  3. ACETAMINOPHEN [Concomitant]

REACTIONS (1)
  - Death [None]
